FAERS Safety Report 19306800 (Version 1)
Quarter: 2021Q2

REPORT INFORMATION
  Report Type: Spontaneous
  Country: US (occurrence: US)
  Receive Date: 20210526
  Receipt Date: 20210526
  Transmission Date: 20210717
  Serious: No
  Sender: FDA-Public Use
  Company Number: US-PFIZER INC-2018387281

PATIENT
  Age: 69 Year
  Sex: Female
  Weight: 68.95 kg

DRUGS (2)
  1. CHANTIX [Suspect]
     Active Substance: VARENICLINE TARTRATE
     Indication: SMOKING CESSATION THERAPY
     Dosage: 1 MG, 2X/DAY (2 IN THE MORNING AND 2 IN THE LATER DAY)
  2. CHANTIX [Suspect]
     Active Substance: VARENICLINE TARTRATE
     Dosage: 1 DF, DAILY

REACTIONS (4)
  - Product dispensing error [Unknown]
  - Nervousness [Unknown]
  - Intentional product misuse [Unknown]
  - Anxiety [Unknown]
